FAERS Safety Report 6419485-4 (Version None)
Quarter: 2009Q4

REPORT INFORMATION
  Report Type: 
  Country: None (occurrence: None)
  Receive Date: 20091029
  Receipt Date: 20091022
  Transmission Date: 20100525
  Serious: Yes (Other)
  Sender: FDA-Public Use
  Company Number: CA-SP-2009-02739

PATIENT
  Age: 39 Year
  Sex: Female

DRUGS (3)
  1. TUBERSOL [Suspect]
     Indication: TUBERCULIN TEST
     Route: 023
     Dates: start: 20050124
  2. TUBERSOL [Suspect]
     Route: 023
     Dates: start: 20050124
  3. TUBERSOL [Suspect]
     Route: 023
     Dates: start: 20050124

REACTIONS (5)
  - ABDOMINAL PAIN UPPER [None]
  - CHEST DISCOMFORT [None]
  - DYSPNOEA [None]
  - LARYNGITIS [None]
  - PALPITATIONS [None]
